FAERS Safety Report 9910237 (Version 1)
Quarter: 2014Q1

REPORT INFORMATION
  Report Type: Spontaneous
  Country: GB (occurrence: GB)
  Receive Date: 20140219
  Receipt Date: 20140219
  Transmission Date: 20141002
  Serious: Yes (Other)
  Sender: FDA-Public Use
  Company Number: GB-TEVA-462697ISR

PATIENT
  Sex: Female

DRUGS (1)
  1. DOXYCYCLINE [Suspect]
     Indication: INFECTION
     Route: 048
     Dates: start: 20120423

REACTIONS (3)
  - Deafness [Unknown]
  - Hypoacusis [Unknown]
  - Autophony [Unknown]
